FAERS Safety Report 4545493-4 (Version None)
Quarter: 2005Q1

REPORT INFORMATION
  Report Type: 
  Country: None (occurrence: None)
  Receive Date: 20050105
  Receipt Date: 20041222
  Transmission Date: 20050727
  Serious: Yes (Hospitalization)
  Sender: FDA-Public Use
  Company Number: GB-MERCK-0412GBR00183

PATIENT
  Age: 72 Year
  Sex: Male

DRUGS (7)
  1. MIDAMOR [Suspect]
     Route: 048
  2. RAMIPRIL [Suspect]
     Route: 048
  3. WARFARIN [Concomitant]
     Route: 048
  4. DIGOXIN [Concomitant]
     Route: 048
  5. BISOPROLOL [Concomitant]
     Route: 048
  6. PRAVASTATIN SODIUM [Concomitant]
     Route: 048
  7. FUROSEMIDE [Concomitant]
     Route: 048

REACTIONS (6)
  - BLOOD CREATINE INCREASED [None]
  - BLOOD SODIUM DECREASED [None]
  - BLOOD UREA INCREASED [None]
  - DEHYDRATION [None]
  - HYPERKALAEMIA [None]
  - HYPOTENSION [None]
